FAERS Safety Report 14304886 (Version 1)
Quarter: 2017Q4

REPORT INFORMATION
  Report Type: Report from Study
  Country: JP (occurrence: JP)
  Receive Date: 20171219
  Receipt Date: 20171219
  Transmission Date: 20180321
  Serious: Yes (Death, Life-Threatening, Other)
  Sender: FDA-Public Use
  Company Number: JP-OTSUKA-03100-JPN-07-0399

PATIENT
  Age: 60 Year
  Sex: Male
  Weight: 53 kg

DRUGS (23)
  1. LEVOMEPROMAZINE [Suspect]
     Active Substance: LEVOMEPROMAZINE
     Indication: SCHIZOPHRENIA
     Dosage: 50 MG, QD (50 MG 4 WEEKS 1DAY. 31JUL07-7AUG07;DOSE INCREASED TO 150 MG ON 31JUL07, 1WEEK 1DAY. TABS)
     Route: 048
     Dates: start: 20070702, end: 20070807
  2. ARIPIPRAZOLE. [Suspect]
     Active Substance: ARIPIPRAZOLE
     Dosage: 12 MG, BID
     Route: 048
     Dates: start: 20070703, end: 20070711
  3. ARIPIPRAZOLE. [Suspect]
     Active Substance: ARIPIPRAZOLE
     Dosage: 15 MG, BID
     Route: 048
     Dates: start: 20070712, end: 20070807
  4. LEVOTOMIN [Suspect]
     Active Substance: LEVOMEPROMAZINE
     Dosage: 150 MG, QD
     Route: 048
     Dates: start: 20070731, end: 20070806
  5. LEVOTOMIN [Suspect]
     Active Substance: LEVOMEPROMAZINE
     Dosage: 100 MG, UNK
     Route: 048
  6. TASMOLIN [Concomitant]
     Active Substance: BIPERIDEN
     Dosage: 3 MG, QD
     Route: 048
     Dates: start: 20070707, end: 20070807
  7. LINTON [Concomitant]
     Active Substance: HALOPERIDOL
     Indication: SCHIZOPHRENIA
     Dosage: 5 MG, QD
     Route: 030
     Dates: start: 20070706, end: 20070726
  8. REPLAS 3 [Concomitant]
     Dosage: 1000 ML, QD
     Route: 042
     Dates: start: 20070807, end: 20070815
  9. ARIPIPRAZOLE. [Suspect]
     Active Substance: ARIPIPRAZOLE
     Indication: SCHIZOPHRENIA
     Dosage: 12 MG, QD
     Route: 048
     Dates: start: 20070627, end: 20070702
  10. TASMOLIN [Concomitant]
     Active Substance: BIPERIDEN
     Dosage: 5 MG, UNK
     Route: 030
     Dates: start: 20070706, end: 20070722
  11. REPLAS 3 [Concomitant]
     Dosage: 1000 ML, QD
     Route: 042
     Dates: start: 20070804, end: 20070805
  12. FLUNITRAZEPAM [Concomitant]
     Active Substance: FLUNITRAZEPAM
     Indication: SCHIZOPHRENIA
     Dosage: 4 MG, UNK
     Route: 048
     Dates: end: 20070807
  13. BIPERIDEN LACTATE [Concomitant]
     Active Substance: BIPERIDEN LACTATE
     Indication: PROPHYLAXIS
     Dosage: 5 MG, UNK
     Route: 030
     Dates: start: 20070706, end: 20070722
  14. DORAL [Concomitant]
     Active Substance: QUAZEPAM
     Indication: SCHIZOPHRENIA
     Dosage: 20 MG, QD
     Route: 048
     Dates: start: 20070602, end: 20070704
  15. PANSPORIN [Concomitant]
     Active Substance: CEFOTIAM HYDROCHLORIDE
     Indication: PNEUMONIA ASPIRATION
     Dosage: 2 MG, QD
     Route: 040
     Dates: start: 20070705, end: 20070711
  16. PANSPORIN [Concomitant]
     Active Substance: CEFOTIAM HYDROCHLORIDE
     Dosage: 2 MG, TID
     Route: 040
     Dates: start: 20070806, end: 20070808
  17. LACTATED RINGERS SOLUTION [Concomitant]
     Active Substance: CALCIUM CHLORIDE\POTASSIUM CHLORIDE\SODIUM CHLORIDE\SODIUM LACTATE
     Indication: PNEUMONIA ASPIRATION
     Dosage: 500 ML, UNK
     Route: 042
     Dates: start: 20070726, end: 20070726
  18. SAWACILLIN [Concomitant]
     Active Substance: AMOXICILLIN
     Indication: PNEUMONIA ASPIRATION
     Dosage: 750 MG, QD
     Route: 048
     Dates: start: 20070804, end: 20070807
  19. AMOXICILLIN TRIHYDRATE [Concomitant]
     Active Substance: AMOXICILLIN
     Indication: PRODUCT USED FOR UNKNOWN INDICATION
     Dosage: UNK
     Route: 065
     Dates: start: 20070804, end: 20070807
  20. REPLAS 3 [Concomitant]
     Indication: PNEUMONIA ASPIRATION
     Dosage: 1000 ML, BID
     Route: 042
     Dates: start: 20070726, end: 20070727
  21. LEVOTOMIN [Suspect]
     Active Substance: LEVOMEPROMAZINE
     Indication: SCHIZOPHRENIA
     Dosage: 100 MG, UNK
     Route: 048
     Dates: end: 20070601
  22. TASMOLIN [Concomitant]
     Active Substance: BIPERIDEN
     Indication: PROPHYLAXIS
     Dosage: 3 MG, UNK
     Route: 048
     Dates: end: 20070601
  23. SILECE [Concomitant]
     Active Substance: FLUNITRAZEPAM
     Indication: SCHIZOPHRENIA
     Dosage: 4 MG, UNK
     Route: 048
     Dates: end: 20070807

REACTIONS (5)
  - Hypoglycaemia [Recovered/Resolved]
  - Neuroleptic malignant syndrome [Fatal]
  - Pneumonia [Fatal]
  - Hepatic failure [Fatal]
  - Drug ineffective [Fatal]

NARRATIVE: CASE EVENT DATE: 20070709
